FAERS Safety Report 15143853 (Version 1)
Quarter: 2018Q3

REPORT INFORMATION
  Report Type: Spontaneous
  Country: US (occurrence: US)
  Receive Date: 20180713
  Receipt Date: 20180713
  Transmission Date: 20181010
  Serious: No
  Sender: FDA-Public Use
  Company Number: US-AMGEN-USASP2011016388

PATIENT
  Sex: Male

DRUGS (3)
  1. EPOGEN [Suspect]
     Active Substance: ERYTHROPOIETIN
     Indication: DIALYSIS
  2. IRON [Suspect]
     Active Substance: IRON
     Route: 042
  3. EPOGEN [Suspect]
     Active Substance: ERYTHROPOIETIN

REACTIONS (1)
  - Burning sensation [Unknown]
